FAERS Safety Report 23773523 (Version 1)
Quarter: 2024Q2

REPORT INFORMATION
  Report Type: Spontaneous
  Country: US (occurrence: None)
  Receive Date: 20240422
  Receipt Date: 20240422
  Transmission Date: 20240716
  Serious: Yes (Hospitalization)
  Sender: FDA-Public Use
  Company Number: None

PATIENT
  Age: 64 Year
  Sex: Female

DRUGS (22)
  1. COSENTYX [Suspect]
     Active Substance: SECUKINUMAB
     Indication: Rheumatoid arthritis
     Dosage: 300 MG EVERY 4 WEEKS SUBCUTANEOUS ?
     Route: 058
     Dates: start: 20201021
  2. ARAVA [Concomitant]
     Active Substance: LEFLUNOMIDE
  3. TIZANIDINE [Concomitant]
     Active Substance: TIZANIDINE
  4. AMLODIPINE [Concomitant]
     Active Substance: AMLODIPINE BESYLATE
  5. BUSPAR [Concomitant]
     Active Substance: BUSPIRONE HYDROCHLORIDE
  6. LEVOTHYROXINE [Concomitant]
     Active Substance: LEVOTHYROXINE\LEVOTHYROXINE SODIUM
  7. VITAMIN D3 [Concomitant]
     Active Substance: CHOLECALCIFEROL
  8. OMEPRAZOLE [Concomitant]
     Active Substance: OMEPRAZOLE
  9. LEVSIN [Concomitant]
     Active Substance: HYOSCYAMINE SULFATE
  10. LYRICA [Concomitant]
     Active Substance: PREGABALIN
  11. VENTOLIN [Concomitant]
     Active Substance: ALBUTEROL SULFATE
  12. Triamcinolone oint [Concomitant]
  13. RESTORIL [Concomitant]
     Active Substance: TEMAZEPAM
  14. FLOMAX [Concomitant]
     Active Substance: TAMSULOSIN HYDROCHLORIDE
  15. CLOPIDOGREL [Concomitant]
     Active Substance: CLOPIDOGREL BISULFATE
  16. GLIPIZIDE [Concomitant]
     Active Substance: GLIPIZIDE
  17. ZONEGRAN [Concomitant]
     Active Substance: ZONISAMIDE
  18. CLONAZEPAM [Concomitant]
     Active Substance: CLONAZEPAM
  19. CHLORTHALIDONE [Concomitant]
     Active Substance: CHLORTHALIDONE
  20. HYDROCHLOROTHIAZIDE [Concomitant]
     Active Substance: HYDROCHLOROTHIAZIDE
  21. LOSARTAN [Concomitant]
     Active Substance: LOSARTAN
  22. METOPROLOL [Concomitant]
     Active Substance: METOPROLOL

REACTIONS (1)
  - Cerebrovascular accident [None]

NARRATIVE: CASE EVENT DATE: 20240416
